FAERS Safety Report 25277403 (Version 1)
Quarter: 2025Q2

REPORT INFORMATION
  Report Type: Spontaneous
  Country: CZ (occurrence: CZ)
  Receive Date: 20250507
  Receipt Date: 20250507
  Transmission Date: 20250716
  Serious: Yes (Other)
  Sender: TEVA
  Company Number: CZ-TEVA-VS-3327930

PATIENT
  Age: 55 Year
  Sex: Male

DRUGS (1)
  1. COPAXONE [Suspect]
     Active Substance: GLATIRAMER ACETATE
     Indication: Relapsing multiple sclerosis
     Route: 065
     Dates: start: 201312

REACTIONS (7)
  - Lipodystrophy acquired [Unknown]
  - Chills [Unknown]
  - Flushing [Unknown]
  - Abdominal pain [Unknown]
  - Dyspnoea [Unknown]
  - Nausea [Unknown]
  - Back pain [Unknown]
